FAERS Safety Report 4524604-0 (Version None)
Quarter: 2004Q4

REPORT INFORMATION
  Report Type: 
  Country: None (occurrence: None)
  Receive Date: 20041117
  Receipt Date: 20040901
  Transmission Date: 20050328
  Serious: Yes (Hospitalization)
  Sender: FDA-Public Use
  Company Number: US-JNJFOC-20040901290

PATIENT
  Age: 70 Year
  Sex: Male

DRUGS (2)
  1. LEVAQUIN [Suspect]
     Indication: PNEUMONIA
     Dosage: 500 MG
  2. REMICADE [Concomitant]

REACTIONS (2)
  - CHILLS [None]
  - MUSCULOSKELETAL STIFFNESS [None]
